FAERS Safety Report 11122903 (Version 9)
Quarter: 2018Q4

REPORT INFORMATION
  Report Type: Spontaneous
  Country: US (occurrence: US)
  Receive Date: 20150519
  Receipt Date: 20181210
  Transmission Date: 20190204
  Serious: Yes (Hospitalization, Other)
  Sender: FDA-Public Use
  Company Number: US-PFIZER INC-2015165338

PATIENT
  Age: 67 Year
  Sex: Female
  Weight: 120 kg

DRUGS (50)
  1. LYRICA [Suspect]
     Active Substance: PREGABALIN
     Indication: DIABETIC NEUROPATHY
     Dosage: 25 MG, 3X/DAY
     Route: 048
     Dates: start: 2014
  2. LYRICA [Suspect]
     Active Substance: PREGABALIN
     Dosage: 50 MG, 2X/DAY
     Route: 048
  3. LYRICA [Suspect]
     Active Substance: PREGABALIN
     Dosage: 100 MG, 3X/DAY
     Route: 048
  4. ISORDIL [Concomitant]
     Active Substance: ISOSORBIDE DINITRATE
     Dosage: 10 MG, 3X/DAY
     Route: 048
  5. PHAZYME /06269601/ [Concomitant]
     Dosage: 180 MG, 1X/DAY (NIGHTY)
     Route: 048
  6. PHENERGAN [Concomitant]
     Active Substance: PROMETHAZINE HYDROCHLORIDE
     Dosage: UNK
  7. METRONIDAZOLE. [Concomitant]
     Active Substance: METRONIDAZOLE
     Dosage: UNK
     Route: 061
  8. BACTROBAN [Concomitant]
     Active Substance: MUPIROCIN\MUPIROCIN CALCIUM
     Indication: DIABETIC ULCER
     Dosage: 3 TIMES DAILY AS NEEDED
     Route: 061
  9. VICTOZA [Concomitant]
     Active Substance: LIRAGLUTIDE
     Indication: DIABETES MELLITUS
     Dosage: 1.8 IU, 1X/DAY
     Route: 058
     Dates: start: 2010
  10. ABC PLUS SENIOR [Concomitant]
     Dosage: 1 DF, DAILY
     Route: 048
  11. FERROUS SULFATE. [Concomitant]
     Active Substance: FERROUS SULFATE
     Indication: MINERAL SUPPLEMENTATION
     Dosage: 325 MG, 1X/DAY
     Route: 048
     Dates: start: 201601
  12. FERROUS SULFATE. [Concomitant]
     Active Substance: FERROUS SULFATE
     Dosage: UNK, WEEKLY
  13. LYRICA [Suspect]
     Active Substance: PREGABALIN
     Indication: NEUROPATHY PERIPHERAL
     Dosage: 25 MG, 3X/DAY
     Route: 048
     Dates: start: 2005, end: 2008
  14. LASIX [Concomitant]
     Active Substance: FUROSEMIDE
     Dosage: 40 MG, 2X/DAY
     Route: 048
  15. VIBRAMYCIN [Concomitant]
     Active Substance: DOXYCYCLINE
     Dosage: 100 MG, 2X/DAY
     Route: 048
  16. HYZAAR [Concomitant]
     Active Substance: HYDROCHLOROTHIAZIDE\LOSARTAN POTASSIUM
     Dosage: 1 DF (50-12.5 MG), 1X/DAY
     Route: 048
  17. APRISO [Concomitant]
     Active Substance: MESALAMINE
     Dosage: 0.75 MG, 2X/DAY (TWO CAPSULES IN THE MORNING AND TWO CAPSULES IN THE EVENING)
     Route: 048
     Dates: start: 2011
  18. LEVOTHROID [Concomitant]
     Active Substance: LEVOTHYROXINE SODIUM
     Dosage: 25 UG, DAILY
     Route: 048
  19. LOSARTAN-HCTZ [Concomitant]
     Active Substance: HYDROCHLOROTHIAZIDE\LOSARTAN
     Indication: HYPERTENSION
     Dosage: 1 DF, DAILY (LOSARTAN-100MG -HYDROCHLOROTHIAZIDE-25 MG)
     Route: 048
  20. HYDROCORTISONE. [Concomitant]
     Active Substance: HYDROCORTISONE
     Indication: ROSACEA
     Dosage: APPLY TO FACE AND EARS AS NEEDED TAPER OFF AS DIRECTED
  21. TUDORZA PRESSAIR [Concomitant]
     Active Substance: ACLIDINIUM BROMIDE
     Dosage: 400 M MCG/ACT AEPB (INHALE INTO THE LUNGS)
     Route: 045
  22. FLECTOR [DICLOFENAC SODIUM] [Concomitant]
     Active Substance: DICLOFENAC SODIUM
     Indication: PAIN
     Dosage: 1 PLACE ON TO SKIN 2X/DAY
     Route: 062
  23. FLECTOR [DICLOFENAC SODIUM] [Concomitant]
     Active Substance: DICLOFENAC SODIUM
     Dosage: ONE PATCH APPLIED TO A PAINFUL AREA AS NEEDED
     Route: 062
  24. NIZORAL [Concomitant]
     Active Substance: KETOCONAZOLE
     Indication: ROSACEA
     Dosage: CREAM APPLY TO FACE AND EARS AS NEEDED TAPER OFF AS DIRECTED
     Route: 061
  25. LAC-HYDRIN [Concomitant]
     Active Substance: AMMONIUM LACTATE
     Dosage: UNK
     Route: 061
  26. NORVASC [Concomitant]
     Active Substance: AMLODIPINE BESYLATE
     Indication: BLOOD PRESSURE SYSTOLIC INCREASED
     Dosage: 5 MG, DAILY (AS NEEDED)
     Route: 048
  27. LANTUS [Concomitant]
     Active Substance: INSULIN GLARGINE
     Indication: DIABETES MELLITUS
     Dosage: 80 IU, 2X/DAY
     Route: 058
     Dates: start: 1993
  28. FUROSEMIDE. [Concomitant]
     Active Substance: FUROSEMIDE
     Indication: DIURETIC THERAPY
     Dosage: 40 MG, 1X/DAY
     Route: 048
  29. HYDRODIURIL [Concomitant]
     Active Substance: HYDROCHLOROTHIAZIDE
     Indication: HYPERTENSION
     Dosage: 12.5 MG, DAILY
     Route: 048
     Dates: start: 201505
  30. DUONEB [Concomitant]
     Active Substance: ALBUTEROL SULFATE\IPRATROPIUM BROMIDE
     Dosage: (IPRATROPIUM BROMIDE 0.5, SALBUTAMOL SULFATE 2.5) MG/3 ML SOLN, 1 VIAL INTO THE LUNGS EVERY 4 HOURS
     Route: 045
  31. PROVENTIL HFA [Concomitant]
     Active Substance: ALBUTEROL SULFATE
     Indication: WHEEZING
     Dosage: INHALE 2 PUFFS INTO THE LUNGS EVERY 6 HOURS AS NEEDED
     Route: 045
  32. DEXILANT [Concomitant]
     Active Substance: DEXLANSOPRAZOLE
     Indication: GASTROOESOPHAGEAL REFLUX DISEASE
     Dosage: 60 MG, DAILY
     Route: 048
  33. NOVOLOG [Concomitant]
     Active Substance: INSULIN ASPART
     Dosage: 50 IU, 3X/DAY
     Route: 058
     Dates: start: 1993
  34. DOXY-CYCL HYOL [Concomitant]
     Indication: ROSACEA
     Dosage: 100 MG, 1X/DAY
     Route: 048
  35. LEVOTHYROXIN [Concomitant]
     Active Substance: LEVOTHYROXINE
     Indication: THYROID DISORDER
     Dosage: 37.5 MG, DAILY
  36. LIDEX [Concomitant]
     Active Substance: FLUOCINONIDE
     Dosage: 0.05 % EXTERNAL SOLUTION, 2X/DAY
     Route: 061
  37. ZYLOPRIM [Concomitant]
     Active Substance: ALLOPURINOL
     Dosage: 100 MG, 1X/DAY
     Route: 048
  38. VENTOLIN HFA [Concomitant]
     Active Substance: ALBUTEROL SULFATE
     Indication: WHEEZING
     Dosage: INHALE 2 PUFFS INTO THE LUNGS EVERY 6 HOURS AS NEEDED
     Route: 045
  39. VOLTAREN [Concomitant]
     Active Substance: DICLOFENAC SODIUM
     Dosage: 2 G, 2X/DAY
     Route: 061
  40. NOVOLOG [Concomitant]
     Active Substance: INSULIN ASPART
     Indication: DIABETES MELLITUS
     Dosage: 20 IU, 3X/DAY
     Route: 058
     Dates: start: 1993
  41. LEVOTHROID [Concomitant]
     Active Substance: LEVOTHYROXINE SODIUM
     Dosage: 37.5 UG, DAILY
     Route: 048
  42. COREG [Concomitant]
     Active Substance: CARVEDILOL
     Indication: CARDIAC DISORDER
     Dosage: 3.125 MG, 2X/DAY
     Route: 048
     Dates: start: 20151210
  43. KENALOG [Concomitant]
     Active Substance: TRIAMCINOLONE ACETONIDE
     Dosage: UNK, AS NEEDED
     Route: 061
  44. TYLENOL [Concomitant]
     Active Substance: ACETAMINOPHEN
     Dosage: 650 MG, (EVERY 8 HOURS AS NEEDED)
     Route: 048
  45. ASPIRIN 81 [Concomitant]
     Active Substance: ASPIRIN
     Dosage: 81 MG, DAILY (AS NEEDED)
     Route: 048
  46. LEVEMIR [Concomitant]
     Active Substance: INSULIN DETEMIR
     Dosage: 90 IU, 2X/DAY
     Route: 058
  47. ALLOPURINOL. [Concomitant]
     Active Substance: ALLOPURINOL
     Indication: GOUT
     Dosage: 100 MG, 1X/DAY
     Route: 048
  48. KETOPROFEN. [Concomitant]
     Active Substance: KETOPROFEN
     Dosage: UNK
  49. APRISO [Concomitant]
     Active Substance: MESALAMINE
     Indication: CROHN^S DISEASE
     Dosage: 0.375 G (2 CAPSULES), 4X/DAY
     Route: 048
  50. NIZORAL [Concomitant]
     Active Substance: KETOCONAZOLE
     Indication: ROSACEA
     Dosage: UNK
     Route: 061

REACTIONS (24)
  - Fluid retention [Recovered/Resolved]
  - Drug ineffective [Unknown]
  - Pain [Unknown]
  - Peripheral swelling [Not Recovered/Not Resolved]
  - Back pain [Not Recovered/Not Resolved]
  - Hypoaesthesia [Unknown]
  - Cardiovascular disorder [Recovered/Resolved]
  - Weight increased [Unknown]
  - Intentional product use issue [Unknown]
  - Condition aggravated [Not Recovered/Not Resolved]
  - Glycosylated haemoglobin increased [Unknown]
  - Anxiety [Not Recovered/Not Resolved]
  - Mobility decreased [Unknown]
  - Renal failure [Recovered/Resolved]
  - Prescribed underdose [Unknown]
  - Insomnia [Unknown]
  - Muscle tightness [Unknown]
  - Tremor [Unknown]
  - Arteriosclerosis [Not Recovered/Not Resolved]
  - Condition aggravated [Unknown]
  - Blood glucose increased [Unknown]
  - Cataract [Unknown]
  - Urinary tract infection [Unknown]
  - Mental disorder [Unknown]

NARRATIVE: CASE EVENT DATE: 201405
